FAERS Safety Report 9732683 (Version 1)
Quarter: 2013Q4

REPORT INFORMATION
  Report Type: Other
  Country: ES (occurrence: ES)
  Receive Date: 20131204
  Receipt Date: 20131204
  Transmission Date: 20140711
  Serious: Yes (Other)
  Sender: FDA-Public Use
  Company Number: ES-BRISTOL-MYERS SQUIBB COMPANY-19864131

PATIENT
  Age: 28 Year
  Sex: 0

DRUGS (1)
  1. ARIPIPRAZOLE [Suspect]

REACTIONS (1)
  - Ventricular arrhythmia [Unknown]
